FAERS Safety Report 5623850-2 (Version None)
Quarter: 2008Q1

REPORT INFORMATION
  Report Type: 
  Country: None (occurrence: None)
  Receive Date: 20080207
  Receipt Date: 20080130
  Transmission Date: 20080703
  Serious: Yes (Hospitalization)
  Sender: FDA-Public Use
  Company Number: 2006-06-0006

PATIENT
  Age: 53 Year
  Sex: Female
  Weight: 53 kg

DRUGS (7)
  1. PEG-INTRON [Suspect]
     Indication: HEPATITIS C
     Dosage: 80 MCG QW SC ; 60 MCG QW SC ; 40 MCG QW SC ; 60 MG QW SC
     Route: 058
     Dates: start: 20050630, end: 20050730
  2. PEG-INTRON [Suspect]
     Indication: HEPATITIS C
     Dosage: 80 MCG QW SC ; 60 MCG QW SC ; 40 MCG QW SC ; 60 MG QW SC
     Route: 058
     Dates: start: 20050806, end: 20050930
  3. PEG-INTRON [Suspect]
     Indication: HEPATITIS C
     Dosage: 80 MCG QW SC ; 60 MCG QW SC ; 40 MCG QW SC ; 60 MG QW SC
     Route: 058
     Dates: start: 20051007, end: 20060119
  4. PEG-INTRON [Suspect]
     Indication: HEPATITIS C
     Dosage: 80 MCG QW SC ; 60 MCG QW SC ; 40 MCG QW SC ; 60 MG QW SC
     Route: 058
     Dates: start: 20050126, end: 20060523
  5. REBETOL [Suspect]
     Indication: HEPATITIS C
     Dosage: 600 MG QD PO ; 400 MG QD PO ; 600 MG QD PO
     Route: 048
     Dates: start: 20050630, end: 20051006
  6. REBETOL [Suspect]
     Indication: HEPATITIS C
     Dosage: 600 MG QD PO ; 400 MG QD PO ; 600 MG QD PO
     Route: 048
     Dates: start: 20051007, end: 20051027
  7. REBETOL [Suspect]
     Indication: HEPATITIS C
     Dosage: 600 MG QD PO ; 400 MG QD PO ; 600 MG QD PO
     Route: 048
     Dates: start: 20051028, end: 20060523

REACTIONS (14)
  - AGGRESSION [None]
  - AGITATION [None]
  - ANAEMIA [None]
  - ANOREXIA [None]
  - ANXIETY [None]
  - CONFUSIONAL STATE [None]
  - DISORIENTATION [None]
  - INSOMNIA [None]
  - JOB DISSATISFACTION [None]
  - MEMORY IMPAIRMENT [None]
  - PYREXIA [None]
  - SPEECH DISORDER [None]
  - STOMATITIS [None]
  - TRUANCY [None]
